FAERS Safety Report 7424826-5 (Version None)
Quarter: 2011Q2

REPORT INFORMATION
  Report Type: 
  Country: None (occurrence: None)
  Receive Date: 20110419
  Receipt Date: 20110412
  Transmission Date: 20111010
  Serious: Yes (Hospitalization, Other)
  Sender: FDA-Public Use
  Company Number: BE-BAXTER-2011BH005295

PATIENT
  Age: 57 Year
  Sex: Female
  Weight: 85 kg

DRUGS (2)
  1. CYCLOPHOSPHAMIDE [Suspect]
     Indication: BREAST CANCER
     Route: 042
     Dates: start: 20101130, end: 20110111
  2. TAXOTERE [Suspect]
     Indication: BREAST CANCER
     Route: 042
     Dates: start: 20101130, end: 20110111

REACTIONS (2)
  - HEPATIC STEATOSIS [None]
  - HEPATITIS C [None]
